FAERS Safety Report 5736288-4 (Version None)
Quarter: 2008Q2

REPORT INFORMATION
  Report Type: 
  Country: None (occurrence: None)
  Receive Date: 20080509
  Receipt Date: 20080509
  Transmission Date: 20081010
  Serious: No
  Sender: FDA-Public Use
  Company Number: None

PATIENT
  Age: 46 Year
  Sex: Male
  Weight: 79.3795 kg

DRUGS (1)
  1. CREST PRO-HEALTH RINSE   PROCTER + GAMBLE CO. [Suspect]
     Indication: DENTAL DISORDER PROPHYLAXIS
     Dosage: SWIG/MOUTHFUL  ONCE DAILY  PO
     Route: 048
     Dates: start: 20061101, end: 20070501

REACTIONS (1)
  - TOOTH DISCOLOURATION [None]
